FAERS Safety Report 24611809 (Version 2)
Quarter: 2024Q4

REPORT INFORMATION
  Report Type: Spontaneous
  Country: CN (occurrence: CN)
  Receive Date: 20241113
  Receipt Date: 20241118
  Transmission Date: 20250115
  Serious: No
  Sender: SANDOZ
  Company Number: CN-002147023-NVSC2024CN217259

PATIENT

DRUGS (2)
  1. DEXAMETHASONE\TOBRAMYCIN [Suspect]
     Active Substance: DEXAMETHASONE\TOBRAMYCIN
     Indication: Xerophthalmia
     Dosage: 4 TIMES DAILY, 1 DROP/TIME
     Route: 047
  2. DEXAMETHASONE\TOBRAMYCIN [Suspect]
     Active Substance: DEXAMETHASONE\TOBRAMYCIN
     Indication: Cataract operation complication

REACTIONS (2)
  - Conjunctival hyperaemia [Unknown]
  - Product use in unapproved indication [Unknown]
